FAERS Safety Report 20633644 (Version 1)
Quarter: 2022Q1

REPORT INFORMATION
  Report Type: Other
  Country: None (occurrence: US)
  Receive Date: 20220324
  Receipt Date: 20220324
  Transmission Date: 20220423
  Serious: Yes (Life-Threatening, Hospitalization)
  Sender: FDA-Public Use
  Company Number: US-Larken Laboratories, Inc.-2127092

PATIENT
  Age: 80 Year
  Sex: Male
  Weight: 77.273 kg

DRUGS (1)
  1. DOXYCYCLINE HYCLATE [Suspect]
     Active Substance: DOXYCYCLINE HYCLATE
     Route: 048

REACTIONS (1)
  - Acquired haemophilia [Recovered/Resolved]
